FAERS Safety Report 7065065-X (Version None)
Quarter: 2010Q4

REPORT INFORMATION
  Report Type: 
  Country: None (occurrence: None)
  Receive Date: 20101022
  Receipt Date: 20101022
  Transmission Date: 20110411
  Serious: Yes (Other)
  Sender: FDA-Public Use
  Company Number: None

PATIENT
  Age: 17 Year
  Sex: Male

DRUGS (3)
  1. HUMALOG [Suspect]
     Indication: DIABETES MELLITUS
     Dosage: GIVE UP TO 60 UNITS UNDER THE SKIN DAILY AS DIRECTED
     Dates: start: 20100201
  2. LANTUS [Concomitant]
  3. ZITHROMAX [Concomitant]

REACTIONS (3)
  - DEVICE ISSUE [None]
  - DIABETES MELLITUS INADEQUATE CONTROL [None]
  - SINUSITIS [None]
